FAERS Safety Report 4309503-1 (Version None)
Quarter: 2004Q1

REPORT INFORMATION
  Report Type: 
  Country: None (occurrence: None)
  Receive Date: 20040301
  Receipt Date: 20040218
  Transmission Date: 20041129
  Serious: Yes (Hospitalization)
  Sender: FDA-Public Use
  Company Number: DEU-2004-0000746

PATIENT
  Age: 56 Year
  Sex: Female
  Weight: 87 kg

DRUGS (4)
  1. UNIPHYL [Suspect]
     Indication: ASTHMA
     Dosage: 300 MG, BID, ORAL
     Route: 048
     Dates: start: 20000101, end: 20031118
  2. UNIPHYL [Suspect]
     Indication: ASTHMA
     Dosage: 300 MG, BID, ORAL
     Route: 048
     Dates: start: 20031125
  3. FORADILE (FORMOTEROL FUMARATE) [Suspect]
     Indication: ASTHMA
     Dosage: 1 UNIT, BID, ORAL
     Route: 048
     Dates: start: 20020101
  4. THYREOTOM (LEVOTHYROXINE, LIOTHYRONINE) [Concomitant]

REACTIONS (5)
  - ARRHYTHMIA [None]
  - DIZZINESS [None]
  - DRUG INTERACTION [None]
  - HEADACHE [None]
  - VENTRICULAR EXTRASYSTOLES [None]
